FAERS Safety Report 7542404-4 (Version None)
Quarter: 2011Q2

REPORT INFORMATION
  Report Type: 
  Country: None (occurrence: None)
  Receive Date: 20110524
  Receipt Date: 20110307
  Transmission Date: 20111010
  Serious: No
  Sender: FDA-Public Use
  Company Number: 009689

PATIENT
  Sex: Male

DRUGS (2)
  1. CIMZIA [Suspect]
     Indication: CROHN'S DISEASE
     Dosage: 400 MG 1X/MONTH SUBCUTANEOUS
     Route: 058
     Dates: start: 20090409
  2. CIMZIA [Suspect]
     Indication: CROHN'S DISEASE
     Dosage: SUBCUTANEOUS
     Route: 058

REACTIONS (3)
  - GASTROINTESTINAL DISORDER [None]
  - DRUG INEFFECTIVE [None]
  - NAUSEA [None]
